FAERS Safety Report 9942332 (Version 3)
Quarter: 2014Q2

REPORT INFORMATION
  Report Type: Spontaneous
  Country: US (occurrence: US)
  Receive Date: 20140303
  Receipt Date: 20140428
  Transmission Date: 20141212
  Serious: Yes (Other)
  Sender: FDA-Public Use
  Company Number: US-PFIZER INC-2014059126

PATIENT
  Age: 58 Year
  Sex: Female

DRUGS (3)
  1. PRISTIQ [Suspect]
     Indication: DEPRESSION
     Dosage: 100 MG, 1X/DAY
     Route: 048
     Dates: end: 2014
  2. WELLBUTRIN [Concomitant]
     Dosage: 300(UNIT NOT PROVIDED)
  3. KLONOPIN [Concomitant]
     Dosage: 0.5 (UNIT NOT PROVIDED) TWICE DAILY

REACTIONS (12)
  - Suicidal ideation [Unknown]
  - Depression [Unknown]
  - Drug withdrawal syndrome [Unknown]
  - Mental disorder [Unknown]
  - Malaise [Unknown]
  - Decreased appetite [Unknown]
  - Insomnia [Unknown]
  - Panic attack [Unknown]
  - Muscle twitching [Unknown]
  - Muscle spasms [Unknown]
  - Headache [Unknown]
  - Abdominal pain upper [Unknown]
